FAERS Safety Report 25395659 (Version 2)
Quarter: 2025Q2

REPORT INFORMATION
  Report Type: Report from Study
  Country: US (occurrence: US)
  Receive Date: 20250604
  Receipt Date: 20250617
  Transmission Date: 20250717
  Serious: Yes (Hospitalization)
  Sender: ALNYLAM PHARMACEUTICALS
  Company Number: US-ALNYLAM PHARMACEUTICALS, INC.-ALN-2025-003049

PATIENT

DRUGS (2)
  1. OXLUMO [Suspect]
     Active Substance: LUMASIRAN
     Indication: Primary hyperoxaluria
     Route: 065
     Dates: start: 20231013, end: 20231013
  2. OXLUMO [Suspect]
     Active Substance: LUMASIRAN
     Dosage: 150 MILLIGRAM, Q3M
     Route: 058

REACTIONS (4)
  - Dyspnoea [Unknown]
  - Heart rate increased [Unknown]
  - Large intestine infection [Unknown]
  - Intentional dose omission [Unknown]

NARRATIVE: CASE EVENT DATE: 20250527
